FAERS Safety Report 9646187 (Version 1)
Quarter: 2013Q4

REPORT INFORMATION
  Report Type: Spontaneous
  Country: GR (occurrence: GR)
  Receive Date: 20131025
  Receipt Date: 20131025
  Transmission Date: 20140711
  Serious: Yes (Other)
  Sender: FDA-Public Use
  Company Number: GR-UCBSA-101166

PATIENT
  Sex: Female

DRUGS (1)
  1. VIMPAT [Suspect]
     Indication: STATUS EPILEPTICUS
     Dosage: DOSE: UNKNOWN

REACTIONS (1)
  - Atrial flutter [Unknown]
